FAERS Safety Report 25146683 (Version 1)
Quarter: 2025Q2

REPORT INFORMATION
  Report Type: Report from Study
  Country: CA (occurrence: CA)
  Receive Date: 20250401
  Receipt Date: 20250401
  Transmission Date: 20250716
  Serious: Yes (Other)
  Sender: SANDOZ
  Company Number: CA-SANDOZ-SDZ2024CA023800

PATIENT
  Sex: Female

DRUGS (3)
  1. ERELZI [Suspect]
     Active Substance: ETANERCEPT-SZZS
     Indication: Rheumatoid arthritis
     Dosage: 50 MG,PRE-FILLED SYRINGE
     Route: 058
     Dates: start: 20240115
  2. ERELZI [Suspect]
     Active Substance: ETANERCEPT-SZZS
     Dosage: 50 MG,PRE-FILLED SYRINGE
     Route: 058
     Dates: start: 20250325
  3. CORTISONE [Concomitant]
     Active Substance: CORTISONE
     Indication: Product used for unknown indication
     Route: 065

REACTIONS (5)
  - Cerebrovascular accident [Unknown]
  - Influenza [Unknown]
  - Cough [Unknown]
  - Arthralgia [Unknown]
  - Walking aid user [Unknown]

NARRATIVE: CASE EVENT DATE: 20240101
